FAERS Safety Report 15250869 (Version 1)
Quarter: 2018Q3

REPORT INFORMATION
  Report Type: Spontaneous
  Country: US (occurrence: US)
  Receive Date: 20180716
  Receipt Date: 20180716
  Transmission Date: 20181010
  Serious: Yes (Disabling, Other)
  Sender: FDA-Public Use
  Company Number: None

PATIENT
  Age: 43 Year
  Sex: Female

DRUGS (2)
  1. MIRENA [Suspect]
     Active Substance: LEVONORGESTREL
     Indication: MUSCLE SPASMS
     Dates: start: 20170201, end: 20170612
  2. MIRENA [Suspect]
     Active Substance: LEVONORGESTREL
     Indication: MENOMETRORRHAGIA
     Dates: start: 20170201, end: 20170612

REACTIONS (3)
  - Economic problem [None]
  - Pain [None]
  - Device ineffective [None]

NARRATIVE: CASE EVENT DATE: 20170201
